FAERS Safety Report 17727135 (Version 1)
Quarter: 2020Q2

REPORT INFORMATION
  Report Type: Spontaneous
  Country: AU (occurrence: AU)
  Receive Date: 20200430
  Receipt Date: 20200430
  Transmission Date: 20200714
  Serious: Yes (Other)
  Sender: FDA-Public Use
  Company Number: AU-TEVA-2020-AU-1226467

PATIENT
  Age: 53 Year
  Sex: Male

DRUGS (2)
  1. IMATINIB MESYLATE. [Suspect]
     Active Substance: IMATINIB MESYLATE
  2. IMATINIB MESYLATE. [Suspect]
     Active Substance: IMATINIB MESYLATE

REACTIONS (7)
  - Philadelphia chromosome positive [Unknown]
  - Muscle spasms [Unknown]
  - Blood creatinine abnormal [Unknown]
  - Drug resistance [Unknown]
  - Therapeutic response decreased [Unknown]
  - Drug intolerance [Unknown]
  - Musculoskeletal disorder [Unknown]
